FAERS Safety Report 13001823 (Version 2)
Quarter: 2017Q1

REPORT INFORMATION
  Report Type: Spontaneous
  Country: GB (occurrence: GB)
  Receive Date: 20161206
  Receipt Date: 20170327
  Transmission Date: 20170428
  Serious: Yes (Other)
  Sender: FDA-Public Use
  Company Number: GB-009507513-1612GBR002433

PATIENT
  Age: 65 Year

DRUGS (4)
  1. VELCADE [Suspect]
     Active Substance: BORTEZOMIB
     Indication: PLASMA CELL MYELOMA
     Dosage: COMBINED WITH DEXAMETHASONE, 5 CYCLES
  2. DEXAMETHASONE. [Suspect]
     Active Substance: DEXAMETHASONE
     Dosage: COMBINED WITH CYCLOPHOSPHAMIDE AND THALIDOMIDE, CYCLICAL
     Route: 065
     Dates: end: 2012
  3. DEXAMETHASONE. [Suspect]
     Active Substance: DEXAMETHASONE
     Dosage: COMBINED WITH LENALIDOMIDE IN EARLY 2012 FOR 44 CYCLES
     Route: 065
     Dates: start: 2012
  4. DEXAMETHASONE. [Suspect]
     Active Substance: DEXAMETHASONE
     Indication: PLASMA CELL MYELOMA
     Dosage: COMBINED WITH VELCADE, 5 CYCLES
     Route: 065

REACTIONS (1)
  - Plasma cell myeloma [Unknown]
